FAERS Safety Report 8016658-4 (Version None)
Quarter: 2012Q1

REPORT INFORMATION
  Report Type: 
  Country: None (occurrence: None)
  Receive Date: 20120102
  Receipt Date: 20111221
  Transmission Date: 20120608
  Serious: Yes (Hospitalization)
  Sender: FDA-Public Use
  Company Number: DE-BRISTOL-MYERS SQUIBB COMPANY-16267163

PATIENT
  Age: 68 Year
  Sex: Female
  Weight: 50 kg

DRUGS (5)
  1. IBUPROFEN [Concomitant]
     Route: 048
  2. BISOPROLOL FUMARATE [Concomitant]
     Indication: HYPERTENSION
     Route: 048
  3. DOXEPIN HCL [Concomitant]
     Indication: SEDATION
     Route: 048
  4. PANTOPRAZOLE SODIUM [Concomitant]
     Route: 048
  5. ERBITUX [Suspect]
     Indication: COLORECTAL CANCER METASTATIC
     Route: 042
     Dates: start: 20110907, end: 20111118

REACTIONS (2)
  - GASTROENTERITIS [None]
  - ESCHERICHIA URINARY TRACT INFECTION [None]
